FAERS Safety Report 20074965 (Version 1)
Quarter: 2021Q4

REPORT INFORMATION
  Report Type: Spontaneous
  Country: JP (occurrence: JP)
  Receive Date: 20211116
  Receipt Date: 20211116
  Transmission Date: 20220303
  Serious: Yes (Other)
  Sender: FDA-Public Use
  Company Number: JP-OTSUKA-2021_039345

PATIENT
  Age: 60 Year
  Sex: Male

DRUGS (1)
  1. SAMSCA [Suspect]
     Active Substance: TOLVAPTAN
     Indication: Congenital cystic kidney disease
     Dosage: 90 DAILY DOSE, UNK
     Route: 048
     Dates: start: 20210312

REACTIONS (1)
  - Ruptured cerebral aneurysm [Recovered/Resolved with Sequelae]

NARRATIVE: CASE EVENT DATE: 20210801
